FAERS Safety Report 14144188 (Version 10)
Quarter: 2018Q4

REPORT INFORMATION
  Report Type: Report from Study
  Country: None (occurrence: TR)
  Receive Date: 20171031
  Receipt Date: 20181030
  Transmission Date: 20190204
  Serious: Yes (Hospitalization, Other)
  Sender: FDA-Public Use
  Company Number: TR-ABBVIE-17K-161-2139620-00

PATIENT
  Age: 74 Year
  Sex: Female
  Weight: 57 kg

DRUGS (11)
  1. DUODOPA [Suspect]
     Active Substance: CARBIDOPA\LEVODOPA
     Dosage: MORNING DOSE(ML) 6.00?CONTINOUS DOSE(ML) 2.00?EXTRA DOSE(ML) 1.00
     Route: 050
  2. PK-MERZ [Concomitant]
     Active Substance: AMANTADINE
     Indication: PRODUCT USED FOR UNKNOWN INDICATION
     Dosage: 3X2
     Route: 048
     Dates: start: 2006
  3. DUODOPA [Suspect]
     Active Substance: CARBIDOPA\LEVODOPA
     Indication: PARKINSON^S DISEASE
     Dosage: MORNING DOSE(ML 6.00?CONTINOUS DOSE(ML) 1.50?EXTRA DOSE;(ML) 1.00
     Route: 050
     Dates: start: 20160608, end: 20171025
  4. MADOPAR HBS [Concomitant]
     Active Substance: BENSERAZIDE HYDROCHLORIDE\LEVODOPA
     Indication: PARKINSON^S DISEASE
     Dosage: 1X2
     Route: 048
     Dates: start: 2006
  5. EXELON [Concomitant]
     Active Substance: RIVASTIGMINE TARTRATE
     Indication: PARKINSON^S DISEASE
     Route: 062
     Dates: start: 2006
  6. VESICARE [Concomitant]
     Active Substance: SOLIFENACIN SUCCINATE
     Indication: INCONTINENCE
     Route: 048
     Dates: start: 2016
  7. DUODOPA [Suspect]
     Active Substance: CARBIDOPA\LEVODOPA
     Dosage: MORNING DOSE(ML) 6.00?CONTINOUS DOSE(ML) 2.40?EXTRA DOSE(ML) 1.00
     Route: 050
  8. LEPONEX [Concomitant]
     Active Substance: CLOZAPINE
     Route: 048
  9. LEPONEX [Concomitant]
     Active Substance: CLOZAPINE
     Indication: PARKINSON^S DISEASE
     Dosage: 1X1/4
     Route: 048
     Dates: start: 2016
  10. CLEXANE [Concomitant]
     Active Substance: ENOXAPARIN SODIUM
     Indication: PRODUCT USED FOR UNKNOWN INDICATION
     Route: 058
  11. DESYREL [Concomitant]
     Active Substance: TRAZODONE HYDROCHLORIDE
     Indication: PRODUCT USED FOR UNKNOWN INDICATION
     Route: 042

REACTIONS (11)
  - Tremor [Recovered/Resolved]
  - Stoma site discharge [Recovered/Resolved]
  - Cyst [Not Recovered/Not Resolved]
  - Hypersomnia [Recovered/Resolved]
  - Blood potassium decreased [Recovered/Resolved]
  - Fall [Recovered/Resolved]
  - Escherichia infection [Recovered/Resolved]
  - Stoma site hypergranulation [Not Recovered/Not Resolved]
  - Hepatic mass [Not Recovered/Not Resolved]
  - C-reactive protein increased [Recovered/Resolved]
  - Stoma site candida [Recovered/Resolved]

NARRATIVE: CASE EVENT DATE: 20171013
